FAERS Safety Report 17510995 (Version 2)
Quarter: 2020Q1

REPORT INFORMATION
  Report Type: Spontaneous
  Country: US (occurrence: US)
  Receive Date: 20200306
  Receipt Date: 20200323
  Transmission Date: 20200409
  Serious: No
  Sender: FDA-Public Use
  Company Number: US-ACTELION-A-NJ2020-202855

PATIENT
  Sex: Female
  Weight: 101.13 kg

DRUGS (2)
  1. OPSUMIT [Suspect]
     Active Substance: MACITENTAN
     Indication: PULMONARY ARTERIAL HYPERTENSION
     Dosage: 10 MG, QD
     Route: 048
  2. XARELTO [Concomitant]
     Active Substance: RIVAROXABAN

REACTIONS (6)
  - Nasopharyngitis [Unknown]
  - Weight increased [Unknown]
  - Urinary tract infection [Unknown]
  - Peripheral swelling [Unknown]
  - Pyrexia [Unknown]
  - Headache [Unknown]
